FAERS Safety Report 13919549 (Version 2)
Quarter: 2017Q4

REPORT INFORMATION
  Report Type: Report from Study
  Country: BR (occurrence: BR)
  Receive Date: 20170830
  Receipt Date: 20171122
  Transmission Date: 20180320
  Serious: Yes (Other)
  Sender: FDA-Public Use
  Company Number: BR-ROCHE-687118

PATIENT
  Age: 59 Year
  Sex: Female
  Weight: 67 kg

DRUGS (11)
  1. MABTHERA [Suspect]
     Active Substance: RITUXIMAB
     Indication: RHEUMATOID ARTHRITIS
     Route: 042
  2. CLONAZEPAM. [Concomitant]
     Active Substance: CLONAZEPAM
  3. TRAZODONE [Concomitant]
     Active Substance: TRAZODONE HYDROCHLORIDE
     Route: 065
  4. MELOXICAM. [Concomitant]
     Active Substance: MELOXICAM
  5. CYCLOBENZAPRINE. [Concomitant]
     Active Substance: CYCLOBENZAPRINE
     Dosage: DRUG REPORTED AS CICLOBENZAPRINE
     Route: 065
  6. DEFLAZACORT [Concomitant]
     Active Substance: DEFLAZACORT
  7. ACTEMRA [Suspect]
     Active Substance: TOCILIZUMAB
     Dosage: RECEIVED LATEST ONE ON 15/SEP/2017
     Route: 042
  8. LEXAPRO [Concomitant]
     Active Substance: ESCITALOPRAM OXALATE
     Route: 065
  9. PROFLAM (BRAZIL) [Concomitant]
     Indication: RHEUMATOID ARTHRITIS
  10. ACTEMRA [Suspect]
     Active Substance: TOCILIZUMAB
     Indication: RHEUMATOID ARTHRITIS
     Dosage: FORM: INFUSION, RECEIVED 6 INFUSIONS
     Route: 042
     Dates: start: 20090807, end: 20100218
  11. ARAVA [Concomitant]
     Active Substance: LEFLUNOMIDE
     Indication: RHEUMATOID ARTHRITIS

REACTIONS (24)
  - Hypersensitivity [Recovered/Resolved]
  - Pruritus [Recovered/Resolved]
  - Speech disorder [Unknown]
  - Rash [Recovered/Resolved]
  - Hypersensitivity [Unknown]
  - Shock [Recovered/Resolved]
  - Dyspnoea [Unknown]
  - Drug ineffective [Unknown]
  - Papule [Unknown]
  - Throat irritation [Recovered/Resolved]
  - Erythema [Unknown]
  - Arthralgia [Not Recovered/Not Resolved]
  - Laryngeal oedema [Recovered/Resolved]
  - Oropharyngeal pain [Recovered/Resolved]
  - Pain [Not Recovered/Not Resolved]
  - Depression [Recovering/Resolving]
  - Vocal cord inflammation [Not Recovered/Not Resolved]
  - Pain in extremity [Not Recovered/Not Resolved]
  - Musculoskeletal pain [Not Recovered/Not Resolved]
  - Anaphylactic shock [Recovered/Resolved]
  - Influenza [Recovered/Resolved]
  - Feeling hot [Recovered/Resolved]
  - Dysphonia [Recovered/Resolved]
  - Burning sensation [Unknown]

NARRATIVE: CASE EVENT DATE: 200908
